FAERS Safety Report 6456665-6 (Version None)
Quarter: 2009Q4

REPORT INFORMATION
  Report Type: 
  Country: None (occurrence: None)
  Receive Date: 20091125
  Receipt Date: 20090128
  Transmission Date: 20100525
  Serious: Yes (Other)
  Sender: FDA-Public Use
  Company Number: A0761895A

PATIENT
  Age: 89 Year
  Sex: Female

DRUGS (21)
  1. LANOXIN [Suspect]
     Indication: ATRIAL FIBRILLATION
     Dosage: .125MG PER DAY
     Route: 048
     Dates: start: 20080301, end: 20081228
  2. DILTIAZEM [Concomitant]
  3. METOPROLOL [Concomitant]
  4. FUROSEMIDE [Concomitant]
  5. GLUCOPHAGE [Concomitant]
  6. GLUCOTROL [Concomitant]
  7. JANUVIA [Concomitant]
  8. LEVOTHYROXINE SODIUM [Concomitant]
  9. SINGULAIR [Concomitant]
  10. SPIRIVA [Concomitant]
  11. ADVICOR [Concomitant]
  12. COUMADIN [Concomitant]
  13. ALPRAZOLAM [Concomitant]
  14. NITROSTAT [Concomitant]
  15. PROVENTIL [Concomitant]
  16. OXYGEN [Concomitant]
  17. IPRATROPIUM BROMIDE [Concomitant]
  18. ALBUTEROL [Concomitant]
  19. ASPIRIN [Concomitant]
  20. ONDANSETRON [Concomitant]
  21. CLARITHROMYCIN [Concomitant]

REACTIONS (4)
  - CARDIOACTIVE DRUG LEVEL INCREASED [None]
  - HALLUCINATION [None]
  - NAUSEA [None]
  - PRODUCT QUALITY ISSUE [None]
